FAERS Safety Report 8602613-X (Version None)
Quarter: 2012Q3

REPORT INFORMATION
  Report Type: 
  Country: None (occurrence: None)
  Receive Date: 20120817
  Receipt Date: 20120810
  Transmission Date: 20120928
  Serious: Yes (Hospitalization)
  Sender: FDA-Public Use
  Company Number: CA-ROCHE-1090531

PATIENT
  Sex: Male

DRUGS (3)
  1. PANTOPRAZOLE SODIUM [Concomitant]
  2. ZELBORAF [Suspect]
     Indication: METASTATIC MALIGNANT MELANOMA
     Route: 048
     Dates: start: 20120701, end: 20120804
  3. SYNTHROID [Concomitant]

REACTIONS (6)
  - NAUSEA [None]
  - SUNBURN [None]
  - ARTHRALGIA [None]
  - SYNCOPE [None]
  - HYPOTENSION [None]
  - FATIGUE [None]
